FAERS Safety Report 4488260-2 (Version None)
Quarter: 2004Q4

REPORT INFORMATION
  Report Type: 
  Country: None (occurrence: None)
  Receive Date: 20041028
  Receipt Date: 20040816
  Transmission Date: 20050328
  Serious: Yes (Other)
  Sender: FDA-Public Use
  Company Number: PHEH2004US08851

PATIENT
  Age: 82 Year
  Sex: Male

DRUGS (5)
  1. ZELNORM [Suspect]
     Indication: CONSTIPATION
     Dosage: 6 MG, BID
     Route: 048
  2. ZELNORM [Suspect]
  3. DULCOLAX [Concomitant]
  4. FIBERCON [Concomitant]
  5. MIRALAX [Concomitant]

REACTIONS (3)
  - FAECES DISCOLOURED [None]
  - HAEMORRHOIDAL HAEMORRHAGE [None]
  - HAEMORRHOIDS [None]
